FAERS Safety Report 5287647-8 (Version None)
Quarter: 2007Q1

REPORT INFORMATION
  Report Type: 
  Country: None (occurrence: None)
  Receive Date: 20070105
  Receipt Date: 20060410
  Transmission Date: 20070707
  Serious: Yes (Hospitalization)
  Sender: FDA-Public Use
  Company Number: 2006-BP-04041RO

PATIENT
  Age: 74 Year
  Sex: Male
  Weight: 110.9 kg

DRUGS (14)
  1. FUROSEMIDE [Suspect]
     Indication: CARDIAC FAILURE CONGESTIVE
     Dosage: 40 MG DAILY (40 MG), PO
     Route: 048
  2. PROTONIX [Concomitant]
  3. ZOLOFT [Concomitant]
  4. COZAAR [Concomitant]
  5. PREDNISONE TAB [Concomitant]
  6. COUMADIN [Concomitant]
  7. MULTIVITAMIN [Concomitant]
  8. ASPIRIN [Concomitant]
  9. NIOSPAN (NICOTINIC ACID) [Concomitant]
  10. CALCIUM (CALCIUM) [Concomitant]
  11. MAGNESIUM (MAGNESIUM) [Concomitant]
  12. OXYGEN (OXYGEN) [Concomitant]
  13. PAU D'ARCO (HERBAL PREPARATION) [Concomitant]
  14. POMEGRANATE (HERBAL PREPARATION) [Concomitant]

REACTIONS (1)
  - DEHYDRATION [None]
